FAERS Safety Report 17834651 (Version 1)
Quarter: 2020Q2

REPORT INFORMATION
  Report Type: Spontaneous
  Country: US (occurrence: US)
  Receive Date: 20200528
  Receipt Date: 20200528
  Transmission Date: 20200714
  Serious: Yes (Death)
  Sender: FDA-Public Use
  Company Number: None

PATIENT
  Age: 61 Year
  Sex: Female
  Weight: 101 kg

DRUGS (5)
  1. VASOPRESSIN INFUSION [Concomitant]
     Dates: start: 20200522, end: 20200523
  2. EPINEPHRINE INFUSION [Concomitant]
     Active Substance: EPINEPHRINE
     Dates: start: 20200523, end: 20200523
  3. NOREPINEPHRINE INFUSION [Concomitant]
     Dates: start: 20200518, end: 20200523
  4. REMDESIVIR. [Suspect]
     Active Substance: REMDESIVIR
     Indication: COVID-19
     Route: 042
  5. PHENYLEPHRINE INFUSION [Concomitant]
     Dates: start: 20200523, end: 20200523

REACTIONS (6)
  - Liver function test increased [None]
  - Product use in unapproved indication [None]
  - Multiple organ dysfunction syndrome [None]
  - Shock [None]
  - Clinical trial participant [None]
  - Acute kidney injury [None]

NARRATIVE: CASE EVENT DATE: 20200523
